FAERS Safety Report 7295084-X (Version None)
Quarter: 2011Q1

REPORT INFORMATION
  Report Type: 
  Country: None (occurrence: None)
  Receive Date: 20110203
  Receipt Date: 20110118
  Transmission Date: 20110831
  Serious: Yes (Death)
  Sender: FDA-Public Use
  Company Number: B0694798A

PATIENT
  Age: 51 Year
  Sex: Female

DRUGS (9)
  1. TRAZODONE (FORMULATION UNKNOWN) (GENERIC)(TRAZODONE) [Suspect]
     Dosage: /ORAL
     Route: 048
  2. BACLOFEN [Suspect]
     Dosage: /ORAL
     Route: 048
  3. LAMOTRIGINE (LAMOTRIGINE) (FORMULATION UNKNOWN) (GENERIC) [Suspect]
     Dosage: /ORAL
     Route: 048
  4. GABAPENTIN [Suspect]
     Dosage: /ORAL
     Route: 048
  5. LORAZEPAM [Suspect]
     Dosage: /ORAL
     Route: 048
  6. DIAZEPAM [Suspect]
     Dosage: /ORAL
     Route: 048
  7. TRAMADOL HYDROCHLORIDE (FORMULATION UNKNOWN) (GENERIC (TRAMADOL HYDROC [Suspect]
     Dosage: /ORAL
     Route: 048
  8. HYDROCODONE + PARACETAMOL (FORMULATIORI'UNKNOWN) (GENERIC) (HYDROCODON [Suspect]
     Dosage: /ORAL
     Route: 048
  9. CARISOPRODOL (FORMULATION UNKNOWN) (GENERIC) (CARISOPRODOL) [Suspect]
     Dosage: /ORAL
     Route: 048

REACTIONS (1)
  - COMPLETED SUICIDE [None]
